FAERS Safety Report 11713936 (Version 2)
Quarter: 2015Q4

REPORT INFORMATION
  Report Type: Spontaneous
  Country: IN (occurrence: IN)
  Receive Date: 20151109
  Receipt Date: 20151112
  Transmission Date: 20160304
  Serious: Yes (Death, Other)
  Sender: FDA-Public Use
  Company Number: PHHY2015IN143931

PATIENT
  Age: 66 Year
  Sex: Male
  Weight: 72 kg

DRUGS (2)
  1. SEQUADRA INHALER [Suspect]
     Active Substance: GLYCOPYRRONIUM\INDACATEROL
     Dosage: UNK, QD
     Route: 048
  2. SEQUADRA INHALER [Suspect]
     Active Substance: GLYCOPYRRONIUM\INDACATEROL
     Indication: DYSPNOEA
     Dosage: UNK, QD
     Route: 048

REACTIONS (6)
  - Drug ineffective [Not Recovered/Not Resolved]
  - Incorrect route of drug administration [Unknown]
  - Off label use [Unknown]
  - Death [Fatal]
  - Respiratory tract infection [Unknown]
  - Cough [Unknown]
